FAERS Safety Report 19186352 (Version 1)
Quarter: 2021Q2

REPORT INFORMATION
  Report Type: Spontaneous
  Country: ES (occurrence: ES)
  Receive Date: 20210427
  Receipt Date: 20210427
  Transmission Date: 20210717
  Serious: Yes (Hospitalization)
  Sender: FDA-Public Use
  Company Number: ES-VERTEX PHARMACEUTICALS-2021-006487

PATIENT
  Age: 25 Year
  Sex: Male

DRUGS (17)
  1. KALYDECO [Suspect]
     Active Substance: IVACAFTOR
     Indication: CYSTIC FIBROSIS
     Dosage: 150 MG, QD (IN THE DINNER)
     Route: 048
     Dates: start: 20200204
  2. COLFINAIR [Concomitant]
     Dosage: 2 MU NEBULISED EACH 12 HOURS
  3. PULMOZYME [Concomitant]
     Active Substance: DORNASE ALFA
     Dosage: ONE NEBULISED AMPOULE WITH HIGH?FLOW NEBULISER EVERY 24 HOURS
  4. ATROVENT [Concomitant]
     Active Substance: IPRATROPIUM BROMIDE
     Dosage: 20: 3?3?3 IN CHAMBER
  5. KREON 25000 [Concomitant]
     Active Substance: PANCRELIPASE
     Dosage: 25000, IN USUAL PATTERN: 8:00 HOURS: 2, 11:00 HOURS: 1, 14:00 HOURS: 2, 17:00 HOURS:
  6. SYMKEVI [Suspect]
     Active Substance: IVACAFTOR\TEZACAFTOR
     Indication: CYSTIC FIBROSIS
     Dosage: 1 DOSAGE FORM, QD (IN THE MORNING)
     Route: 048
     Dates: start: 20200204
  7. KONAKION [Concomitant]
     Active Substance: PHYTONADIONE
     Indication: VITAMIN K DEFICIENCY
     Dosage: UNK, QW
  8. TERBASMIN [TERBUTALINE] [Concomitant]
     Dosage: 500 MCG TURBUHALER, 2 INHALATION BEFORE A NEBULIZATION WITH HYANEB
  9. HYANEB [Concomitant]
     Dosage: ONE NEBULISED AMPOULE WITH HIGH?FLOW NEBULISER EVERY 12 HOURS
  10. SERETIDE [Concomitant]
     Active Substance: FLUTICASONE PROPIONATE\SALMETEROL XINAFOATE
     Dosage: 25/250, 2 PUFF WITH SPACER CHAMBER EVERY 12 HOURS
  11. AZITROMICINA [Concomitant]
     Active Substance: AZITHROMYCIN DIHYDRATE
     Dosage: 250 MG ON MON, WED AND FRI
  12. SUPRADYN [MINERALS NOS;VITAMINS NOS] [Concomitant]
     Dosage: 1 TABLET AT BREAKFAST
  13. GLUCERNA [Concomitant]
     Active Substance: AMINO ACIDS\DEXTROSE\ELECTROLYTES NOS\SOYBEAN OIL\VITAMINS
     Dosage: 220 ML: 1 OVERNIGHT PER PEG
  14. AUXINA A MASIVA [RETINOL] [Concomitant]
     Dosage: 1 CAPSULE AT BREAKFAST
  15. LEVEMIR [Concomitant]
     Active Substance: INSULIN DETEMIR
     Dosage: WITH NO CHANGES IN BREAKFAST AND DINNER
  16. APIDRA [Concomitant]
     Active Substance: INSULIN GLULISINE
     Dosage: ACCORDING TO THE PATIENT^S OWN SETTINGS
  17. AUXINA E [Concomitant]
     Dosage: 200 MG, 1 CAPSULE AT BREAKFAST

REACTIONS (2)
  - Infective pulmonary exacerbation of cystic fibrosis [Unknown]
  - Haemoptysis [Unknown]

NARRATIVE: CASE EVENT DATE: 2020
